FAERS Safety Report 9749366 (Version 1)
Quarter: 2013Q4

REPORT INFORMATION
  Report Type: Spontaneous
  Country: GB (occurrence: None)
  Receive Date: 20131209
  Receipt Date: 20131209
  Transmission Date: 20140711
  Serious: Yes (Other)
  Sender: FDA-Public Use
  Company Number: 2055331

PATIENT
  Age: 31 Year
  Sex: Female

DRUGS (2)
  1. (METHOTREXATE) [Suspect]
     Indication: PRODUCT USED FOR UNKNOWN INDICATION
  2. ADALIMUMAB [Suspect]
     Indication: CROHN^S DISEASE

REACTIONS (3)
  - Pneumonia [None]
  - Papilloma viral infection [None]
  - Adverse drug reaction [None]
